FAERS Safety Report 9314407 (Version 3)
Quarter: 2013Q3

REPORT INFORMATION
  Report Type: Spontaneous
  Country: IT (occurrence: IT)
  Receive Date: 20130529
  Receipt Date: 20130722
  Transmission Date: 20140515
  Serious: Yes (Death)
  Sender: FDA-Public Use
  Company Number: IT-SANOFI-AVENTIS-2013SA052603

PATIENT
  Age: 63 Year
  Sex: Female

DRUGS (1)
  1. PLAVIX [Suspect]
     Indication: NERVOUS SYSTEM DISORDER
     Route: 048
     Dates: end: 20120301

REACTIONS (3)
  - Hypovolaemic shock [Fatal]
  - Haemorrhage [Fatal]
  - Traumatic haematoma [Unknown]
